FAERS Safety Report 10082969 (Version 1)
Quarter: 2014Q2

REPORT INFORMATION
  Report Type: Spontaneous
  Country: AR (occurrence: AR)
  Receive Date: 20140417
  Receipt Date: 20140417
  Transmission Date: 20141212
  Serious: Yes (Death)
  Sender: FDA-Public Use
  Company Number: AR-PFIZER INC-2014106594

PATIENT
  Sex: 0

DRUGS (1)
  1. XALKORI [Suspect]

REACTIONS (1)
  - Death [Fatal]
